FAERS Safety Report 7024461-7 (Version None)
Quarter: 2010Q3

REPORT INFORMATION
  Report Type: 
  Country: None (occurrence: None)
  Receive Date: 20100929
  Receipt Date: 20100917
  Transmission Date: 20110219
  Serious: Yes (Other)
  Sender: FDA-Public Use
  Company Number: 1000014719

PATIENT
  Age: 34 Year
  Sex: Female
  Weight: 78 kg

DRUGS (5)
  1. ESCITALOPRAM [Suspect]
     Indication: DEPRESSION
     Dosage: 10 MG (10 MG, 1 IN 1 D), ORAL
     Route: 048
     Dates: start: 20100503, end: 20100513
  2. MINIDRIL (EUGYNON) (EUGYNON) [Concomitant]
  3. LEVOTHYROXINE SODIUM [Concomitant]
  4. SOLUPRED (PREDNISOLONE) (PREDNISOLONE) [Concomitant]
  5. PANOS (TETRAZEPAM) (TETRAZEPAM) [Concomitant]

REACTIONS (2)
  - DYSKINESIA [None]
  - MUSCLE CONTRACTURE [None]
